FAERS Safety Report 6132658-3 (Version None)
Quarter: 2009Q1

REPORT INFORMATION
  Report Type: 
  Country: None (occurrence: None)
  Receive Date: 20090324
  Receipt Date: 20090310
  Transmission Date: 20090719
  Serious: Yes (Death)
  Sender: FDA-Public Use
  Company Number: 2008AL011200

PATIENT
  Age: 64 Year
  Sex: Female

DRUGS (19)
  1. DIGOXIN [Suspect]
     Dosage: 0.125MG, PO
     Route: 048
  2. MIDODRINE [Concomitant]
  3. FOLBIC [Concomitant]
  4. PLAVIX [Concomitant]
  5. SIMVASTATIN [Concomitant]
  6. PREVPAC [Concomitant]
  7. PROTONIX [Concomitant]
  8. METOCLOPRAMIDE [Concomitant]
  9. ANTIVERT [Concomitant]
  10. CLARITIN [Concomitant]
  11. PHENERGAN [Concomitant]
  12. CARTIA XT [Concomitant]
  13. PHOSLO [Concomitant]
  14. ZOCOR [Concomitant]
  15. LANTUS [Concomitant]
  16. NITROSTAT [Concomitant]
  17. ECITRIN [Concomitant]
  18. COREG [Concomitant]
  19. ALTACE [Concomitant]

REACTIONS (16)
  - BREATHING-RELATED SLEEP DISORDER [None]
  - CHEYNE-STOKES RESPIRATION [None]
  - DIALYSIS [None]
  - DYSPNOEA EXERTIONAL [None]
  - DYSPNOEA PAROXYSMAL NOCTURNAL [None]
  - HEADACHE [None]
  - LYMPHADENOPATHY [None]
  - OEDEMA PERIPHERAL [None]
  - ORTHOPNOEA [None]
  - PRODUCT QUALITY ISSUE [None]
  - RESPIRATORY RATE DECREASED [None]
  - RESPIRATORY RATE INCREASED [None]
  - SLEEP APNOEA SYNDROME [None]
  - SNORING [None]
  - SUDDEN DEATH [None]
  - VISUAL ACUITY REDUCED [None]
